FAERS Safety Report 6685964-8 (Version None)
Quarter: 2010Q2

REPORT INFORMATION
  Report Type: 
  Country: None (occurrence: None)
  Receive Date: 20100419
  Receipt Date: 20100406
  Transmission Date: 20101027
  Serious: Yes (Hospitalization, Other)
  Sender: FDA-Public Use
  Company Number: PHHY2010US13824

PATIENT
  Sex: Female
  Weight: 84.821 kg

DRUGS (39)
  1. RECLAST [Suspect]
     Indication: OSTEOPOROSIS
     Dosage: 5 MG, ONCE YEARLY
     Route: 042
     Dates: start: 20100126
  2. COUMADIN [Concomitant]
     Dosage: 5MG TABLET
  3. COUMADIN [Concomitant]
     Dosage: 1MG TABLET
  4. COUMADIN [Concomitant]
     Dosage: 4MG TABLET
  5. COUMADIN [Concomitant]
     Dosage: 2MG TABLET
  6. ADVAIR DISKUS 100/50 [Concomitant]
     Dosage: 250-50 MCG , 1 PUFF TWICE DAILY AS NEEDED
  7. FLUOXETINE HYDROCHLORIDE [Concomitant]
     Dosage: 4 CAPSULES DAILY
  8. AMBIEN [Concomitant]
     Dosage: 2 TABLETS ORALLY AT BED TIME
     Route: 048
  9. BENZONATATE [Concomitant]
     Dosage: 1 TABLET ORALLY 3 TIMES DAILY AS NEEDED
     Route: 048
  10. ALPRAZOLAM [Concomitant]
     Dosage: 1 TABLET TWICE DAILY AS NEEDED
  11. CULTURELLE [Concomitant]
     Dosage: 10 B CELL CAPS, 1 TABLET ORALLY TWICE DAILY
     Route: 048
  12. LOMOTIL [Concomitant]
     Dosage: 1-2 TABLETS TWICE DAILY
     Route: 048
  13. CYCLOBENZAPRINE HYDROCHLORIDE [Concomitant]
     Dosage: 1 TABLET 3 TIMES DAILY
     Route: 048
  14. PROAIR HFA (ALBUTEROL SULFATE) INHALATION AEROSOL [Concomitant]
     Dosage: 2 PUFFS EVERY 4 HOURS AS NEEDED
  15. RANITIDINE HYDROCHLORIDE [Concomitant]
     Indication: DYSPEPSIA
     Dosage: 1-2 TABLETS EVERY NIGHT AS NEEDED
  16. TINACTIN [Concomitant]
     Dosage: APPLY TO RASH TWICE DAILY UNTIL CLEARS AND THEN CONTINUE 48 HRRS AFTER
  17. SILVADENE [Concomitant]
     Dosage: APPLY ON EFFECTED AREAS DAILY UNTIL RESOLVED
     Route: 061
  18. COMPAZINE - SLOW RELEASE [Concomitant]
     Indication: NAUSEA
     Dosage: 1 TABLET UPTO 3 TIMES DAILY
     Route: 048
  19. MYCOSTATIN [Concomitant]
     Dosage: 5 CC SWISH AND SPIT 4 TIMES DAILY-(2.5 CC EACH CHEEK AND HOLD IN MOUTH AS LONG AS POSSIBLE
  20. GLIPIZIDE [Concomitant]
     Dosage: HALF TABLET TWICE A DAY WITHBREAKFAST AND SUPPER
  21. LYRICA [Concomitant]
     Dosage: 1 CAPSULE DAILY
     Route: 048
  22. NYSTATIN [Concomitant]
     Dosage: APPLY ON EFFECTED AREA TWICE DAILY
  23. VOLTAREN [Concomitant]
     Indication: ARTHRALGIA
     Dosage: APPLY 4 GMS 4 TIMES DAILY AS NEEDED
  24. AMMONIUM LACTATE [Concomitant]
     Dosage: APPLY DAILY
  25. BYETTA [Concomitant]
     Dosage: 10MCG PEN, INJECT 10MCG WITH BREAKFAST AND WITH SUPPER
     Route: 058
  26. INSULIN INJECTION [Concomitant]
     Dosage: 31GX5MM MISC USE FOR INJECTING BYETTA TWICE A DAY
  27. DEVROM [Concomitant]
     Dosage: USE AS DIRECTED
  28. OXYCODONE HCL [Concomitant]
     Indication: PAIN
     Dosage: 1-2, Q 4-6H PRN SEVERE PAIN , DONT TAKE IF DROWSY
     Route: 048
  29. OXYCONTIN [Concomitant]
     Dosage: XR 12H, 1 TABLET 3 TIMES DAILY
     Route: 048
  30. VITAMIN D [Concomitant]
     Dosage: 1 TABLET WEEKLY
     Route: 048
  31. OMEPRAZOLE [Concomitant]
     Dosage: 1 Q AM
  32. ZITHROMAX [Concomitant]
     Dosage: 2 TABLETS IMMEDIATELY THEN 1 TABLET DAILY FOR 4 DAYS
  33. CHANTIX [Concomitant]
     Dosage: 1 TABLET TWICE DAILY FOR 4 WEEKS
     Route: 048
  34. NEURONTIN [Concomitant]
  35. SIMVASTATIN [Concomitant]
  36. PROZAC [Concomitant]
  37. ADVAIR DISKUS 100/50 [Concomitant]
  38. ALBUTEROL [Concomitant]
  39. MORPHINE [Concomitant]
     Indication: DISCOMFORT

REACTIONS (24)
  - ABDOMINAL HERNIA [None]
  - ABDOMINAL PAIN LOWER [None]
  - ARTHRALGIA [None]
  - BACK PAIN [None]
  - BODY TEMPERATURE INCREASED [None]
  - BONE PAIN [None]
  - BREAST CELLULITIS [None]
  - BREAST PAIN [None]
  - CHEST DISCOMFORT [None]
  - CHEST PAIN [None]
  - DIZZINESS [None]
  - DRY MOUTH [None]
  - DYSPHAGIA [None]
  - FATIGUE [None]
  - HEADACHE [None]
  - HYPERHIDROSIS [None]
  - HYPOACUSIS [None]
  - HYPOTENSION [None]
  - LETHARGY [None]
  - MALAISE [None]
  - MYALGIA [None]
  - NAUSEA [None]
  - SINUSITIS [None]
  - VOMITING [None]
